FAERS Safety Report 6833723-5 (Version None)
Quarter: 2010Q3

REPORT INFORMATION
  Report Type: 
  Country: None (occurrence: None)
  Receive Date: 20100712
  Receipt Date: 20070330
  Transmission Date: 20110219
  Serious: No
  Sender: FDA-Public Use
  Company Number: US-PFIZER INC-2007027309

PATIENT
  Sex: Female
  Weight: 77.11 kg

DRUGS (4)
  1. CHANTIX [Suspect]
     Indication: SMOKING CESSATION THERAPY
     Dates: start: 20070308
  2. ALL OTHER THERAPEUTIC PRODUCTS [Interacting]
     Indication: HORMONE LEVEL ABNORMAL
  3. NORVASC [Concomitant]
  4. ZELNORM [Concomitant]
     Dates: start: 20061001

REACTIONS (5)
  - ANGER [None]
  - DEPRESSION [None]
  - DRUG INTERACTION [None]
  - HOT FLUSH [None]
  - INSOMNIA [None]
